FAERS Safety Report 16590398 (Version 1)
Quarter: 2019Q3

REPORT INFORMATION
  Report Type: Spontaneous
  Country: DE (occurrence: DE)
  Receive Date: 20190718
  Receipt Date: 20190718
  Transmission Date: 20191004
  Serious: Yes (Life-Threatening, Hospitalization)
  Sender: FDA-Public Use
  Company Number: DE-TEVA-2019-DE-1078011

PATIENT
  Age: 77 Year
  Sex: Male
  Weight: 67 kg

DRUGS (17)
  1. IRBESARTAN. [Concomitant]
     Active Substance: IRBESARTAN
     Dosage: 300 MG, 1-0-0-0, TABLETS
     Route: 048
  2. INSULIN [Concomitant]
     Active Substance: INSULIN NOS
     Dosage: SCHEME, SOLUTION FOR INJECTION / INFUSION
     Route: 058
  3. ALLOPURINOL. [Concomitant]
     Active Substance: ALLOPURINOL
     Dosage: 100 MG, 1-0-0-0, TABLETS
     Route: 048
  4. NOVALGIN (METAMIZOLE SODIUM) [Concomitant]
     Active Substance: METAMIZOLE SODIUM
     Dosage: 1 G, 1-1-1-0, TABLETS
     Route: 048
  5. AMLODIPINE [Concomitant]
     Active Substance: AMLODIPINE BESYLATE
     Dosage: 5 MG, 1-0-1-0, TABLETS
     Route: 048
  6. CLOPIDOGREL [Suspect]
     Active Substance: CLOPIDOGREL BISULFATE
     Dosage: 75 MG, 0-0-1-0, TABLETS
     Route: 048
  7. PANTOZOL [Concomitant]
     Active Substance: PANTOPRAZOLE SODIUM
     Dosage: 40 MG, 1-0-1-0, TABLETS
     Route: 048
  8. FERRO SANOL DUODENAL 100MG [Concomitant]
     Dosage: 100 MG, 1-0-0-0, CAPSULES
     Route: 048
  9. TARGIN 10MG/5MG [Concomitant]
     Dosage: 10|5 MG, 1-0-1-0, TABLETS
     Route: 048
  10. EFFENTORA [Concomitant]
     Active Substance: FENTANYL CITRATE
     Dosage: 100 MICROGRAM, 0-0-1-0, BUCCALTABLETS
     Route: 048
  11. METOPROLOL. [Concomitant]
     Active Substance: METOPROLOL
     Dosage: 95 MG, 0-0-1-0, TABLETS
     Route: 048
  12. JODID 200MICROGRAMM [Concomitant]
     Dosage: 200 MICROGRAM, 1-0-0-0, TABLETS
     Route: 048
  13. HYDROCHLOROTHIAZID [Concomitant]
     Active Substance: HYDROCHLOROTHIAZIDE
     Dosage: 25 MG, 1-0-0-0, TABLETS
     Route: 048
  14. SIMVASTATIN. [Concomitant]
     Active Substance: SIMVASTATIN
     Dosage: 40 MG, 0-0-1-0, TABLETS
     Route: 048
  15. SPIRONOLACTONE. [Concomitant]
     Active Substance: SPIRONOLACTONE
     Dosage: 50 MG, 1-0-0-0, TABLETS
     Route: 048
  16. PREGABALIN. [Concomitant]
     Active Substance: PREGABALIN
     Dosage: 75 MG, 1-0-1-0, TABLETS
     Route: 048
  17. KREON 50000 [Concomitant]
     Dosage: 50000 IE, 1-1-1-0, CAPSULE
     Route: 048

REACTIONS (5)
  - Asthenia [Unknown]
  - Diarrhoea haemorrhagic [Unknown]
  - Abdominal pain [Unknown]
  - Fatigue [Unknown]
  - Preternatural anus [Unknown]
